FAERS Safety Report 25932611 (Version 1)
Quarter: 2025Q4

REPORT INFORMATION
  Report Type: Spontaneous
  Country: US (occurrence: US)
  Receive Date: 20251017
  Receipt Date: 20251017
  Transmission Date: 20260118
  Serious: Yes (Hospitalization, Other)
  Sender: BAXTER
  Company Number: US-MLMSERVICE-20230203-4082338-1

PATIENT
  Age: 65 Year
  Sex: Male

DRUGS (3)
  1. HEPARIN SODIUM [Suspect]
     Active Substance: HEPARIN SODIUM
     Indication: Prophylaxis
     Dosage: 10000 IU INTERNATIONAL UNIT(S), INTRAOPERATIVELY
     Route: 065
  2. HEPARIN SODIUM [Suspect]
     Active Substance: HEPARIN SODIUM
     Indication: Anticoagulant therapy
     Dosage: 5000 IU INTERNATIONAL UNIT(S), A TOTAL OF 3 TIMES
     Route: 065
  3. ARGATROBAN [Concomitant]
     Active Substance: ARGATROBAN
     Dosage: INFUSION
     Route: 065

REACTIONS (11)
  - Blood creatinine increased [Unknown]
  - Red blood cell sedimentation rate increased [Unknown]
  - C-reactive protein increased [Unknown]
  - Abdominal pain [Recovered/Resolved]
  - Anaemia [Recovered/Resolved]
  - Haematochezia [Recovered/Resolved]
  - Heparin-induced thrombocytopenia [Recovered/Resolved]
  - Gastrointestinal haemorrhage [Unknown]
  - Purpura [Recovering/Resolving]
  - Skin discolouration [Unknown]
  - Skin necrosis [Unknown]
